FAERS Safety Report 16287142 (Version 1)
Quarter: 2019Q2

REPORT INFORMATION
  Report Type: Spontaneous
  Country: FR (occurrence: FR)
  Receive Date: 20190508
  Receipt Date: 20190508
  Transmission Date: 20190711
  Serious: Yes (Hospitalization, Other)
  Sender: FDA-Public Use
  Company Number: FR-SA-2019SA124047

PATIENT
  Age: 58 Year
  Sex: Male
  Weight: 57 kg

DRUGS (10)
  1. ESIDREX [Concomitant]
     Active Substance: HYDROCHLOROTHIAZIDE
  2. MODOPAR [Concomitant]
     Active Substance: BENSERAZIDE HYDROCHLORIDE\LEVODOPA
     Indication: PARKINSON^S DISEASE
  3. FUROSEMIDE. [Concomitant]
     Active Substance: FUROSEMIDE
     Dosage: UNK, UNK
     Route: 065
  4. PRAMIPEXOLE. [Concomitant]
     Active Substance: PRAMIPEXOLE
  5. FABRAZYME [Suspect]
     Active Substance: AGALSIDASE BETA
     Indication: FABRY^S DISEASE
     Route: 041
  6. AZILECT [Concomitant]
     Active Substance: RASAGILINE MESYLATE
  7. TEGRETOL [Concomitant]
     Active Substance: CARBAMAZEPINE
  8. RAMIPRIL. [Concomitant]
     Active Substance: RAMIPRIL
  9. APIXABAN [Concomitant]
     Active Substance: APIXABAN
  10. RESIKALI [Concomitant]
     Active Substance: CALCIUM POLYSTYRENE SULFONATE

REACTIONS (4)
  - Cardiac failure [Recovered/Resolved]
  - Rales [Recovered/Resolved]
  - Productive cough [Recovered/Resolved]
  - Rhonchi [Recovered/Resolved]

NARRATIVE: CASE EVENT DATE: 2019
